FAERS Safety Report 23441589 (Version 1)
Quarter: 2024Q1

REPORT INFORMATION
  Report Type: Spontaneous
  Country: GB (occurrence: GB)
  Receive Date: 20240125
  Receipt Date: 20240125
  Transmission Date: 20240410
  Serious: Yes (Other)
  Sender: FDA-Public Use
  Company Number: GB-MHRA-MED-202312202139125730-DCQRN

PATIENT
  Sex: Female
  Weight: 100 kg

DRUGS (4)
  1. CIPROFLOXACIN [Suspect]
     Active Substance: CIPROFLOXACIN
     Indication: Lower respiratory tract infection
     Dosage: UNK
     Route: 065
  2. SERETIDE [Concomitant]
     Active Substance: FLUTICASONE PROPIONATE\SALMETEROL XINAFOATE
     Indication: Product used for unknown indication
     Dosage: UNK
     Route: 065
  3. VENTOLIN [Concomitant]
     Active Substance: ALBUTEROL SULFATE
     Indication: Product used for unknown indication
     Dosage: UNK
     Route: 065
  4. SERTRALINE [Concomitant]
     Active Substance: SERTRALINE HYDROCHLORIDE
     Indication: Product used for unknown indication
     Dosage: UNK
     Route: 065

REACTIONS (12)
  - Arthralgia [Recovered/Resolved]
  - Anxiety [Recovered/Resolved]
  - Dissociation [Recovered/Resolved]
  - Dizziness [Recovered/Resolved]
  - Eye pain [Recovered/Resolved]
  - Feeling abnormal [Recovered/Resolved]
  - Flushing [Recovered/Resolved]
  - Myalgia [Recovered/Resolved]
  - Morning sickness [Recovered/Resolved]
  - Skin burning sensation [Recovered/Resolved]
  - Tendonitis [Recovered/Resolved]
  - Vision blurred [Recovered/Resolved]
